FAERS Safety Report 5929431-5 (Version None)
Quarter: 2008Q4

REPORT INFORMATION
  Report Type: 
  Country: None (occurrence: None)
  Receive Date: 20081024
  Receipt Date: 20081021
  Transmission Date: 20090506
  Serious: Yes (Other)
  Sender: FDA-Public Use
  Company Number: GB-ROCHE-592763

PATIENT
  Sex: Male
  Weight: 136.5 kg

DRUGS (9)
  1. ORLISTAT [Suspect]
     Indication: OBESITY
     Route: 048
     Dates: start: 20080121
  2. ISOSORBIDE MONONITRATE [Concomitant]
     Indication: BLOOD PRESSURE
     Route: 048
  3. SIMVASTATIN [Concomitant]
     Route: 048
  4. METFORMIN HCL [Concomitant]
     Route: 048
  5. RAMIPRIL [Concomitant]
     Indication: BLOOD PRESSURE
     Route: 048
  6. ATENOLOL [Concomitant]
     Indication: BLOOD PRESSURE
     Route: 048
  7. VITAMIN B [Concomitant]
     Route: 048
  8. THIAMINE HCL [Concomitant]
     Route: 048
  9. HUMULIN M3 [Concomitant]
     Dosage: 50IU IN THE MORNING, 35IU IN THE EVENING
     Route: 058

REACTIONS (1)
  - MUSCLE ATROPHY [None]
